FAERS Safety Report 5407510-9 (Version None)
Quarter: 2007Q3

REPORT INFORMATION
  Report Type: 
  Country: None (occurrence: None)
  Receive Date: 20070807
  Receipt Date: 20070727
  Transmission Date: 20080115
  Serious: Yes (Other)
  Sender: FDA-Public Use
  Company Number: US-PFIZER INC-2007061292

PATIENT
  Sex: Female
  Weight: 87.272 kg

DRUGS (5)
  1. LYRICA [Suspect]
     Indication: NEUROPATHY
  2. ALL OTHER THERAPEUTIC PRODUCTS [Suspect]
     Indication: DIABETES MELLITUS
  3. VYTORIN [Suspect]
     Indication: BLOOD CHOLESTEROL INCREASED
  4. PLAVIX [Suspect]
     Indication: CEREBROVASCULAR ACCIDENT
  5. METFORMIN HYDROCHLORIDE [Suspect]

REACTIONS (11)
  - ARTHRALGIA [None]
  - ARTHRITIS [None]
  - BLOOD GLUCOSE INCREASED [None]
  - BURNING SENSATION [None]
  - DEPRESSION [None]
  - DRUG INEFFECTIVE [None]
  - FRUSTRATION [None]
  - MUSCULOSKELETAL STIFFNESS [None]
  - PAIN [None]
  - SKIN TIGHTNESS [None]
  - WEIGHT INCREASED [None]
